FAERS Safety Report 4931340-5 (Version None)
Quarter: 2006Q1

REPORT INFORMATION
  Report Type: 
  Country: None (occurrence: None)
  Receive Date: 20060228
  Receipt Date: 20060215
  Transmission Date: 20060701
  Serious: Yes (Other)
  Sender: FDA-Public Use
  Company Number: 2003-03-2061

PATIENT
  Age: 30 Year
  Sex: Female
  Weight: 56.246 kg

DRUGS (9)
  1. CLARITIN [Suspect]
     Indication: MULTIPLE ALLERGIES
     Dosage: 10MG TAB QD ORAL
     Route: 048
     Dates: start: 20010417, end: 20010430
  2. SYNTHROID [Suspect]
     Indication: HYPOTHYROIDISM
     Dosage: 75MCG* ORAL; SEE IMAGE
     Route: 048
     Dates: start: 19950101
  3. SYNTHROID [Suspect]
     Indication: HYPOTHYROIDISM
     Dosage: 75MCG* ORAL; SEE IMAGE
     Route: 048
     Dates: start: 20020722
  4. HUMALOG (INSULIN ANALOG) [Concomitant]
  5. DURATION FOR IDDM [Concomitant]
  6. HUMALOG (INSULIN ANALOG) [Concomitant]
  7. PROMETHAZINE [Concomitant]
  8. HUMULIN 70/30 SLIDING SCALE [Concomitant]
  9. ATIVAN INTERMITTENT [Concomitant]

REACTIONS (12)
  - ALOPECIA UNIVERSALIS [None]
  - ANXIETY [None]
  - BLOOD GLUCOSE FLUCTUATION [None]
  - BLOOD GLUCOSE INCREASED [None]
  - DEPRESSION [None]
  - HAIR GROWTH ABNORMAL [None]
  - HEADACHE [None]
  - HYPERAEMIA [None]
  - HYPOTRICHOSIS [None]
  - MENSTRUAL DISORDER [None]
  - TINNITUS [None]
  - TREATMENT NONCOMPLIANCE [None]
